FAERS Safety Report 8476753-2 (Version None)
Quarter: 2012Q2

REPORT INFORMATION
  Report Type: 
  Country: None (occurrence: None)
  Receive Date: 20120628
  Receipt Date: 20110816
  Transmission Date: 20120825
  Serious: Yes (Death)
  Sender: FDA-Public Use
  Company Number: FR-MERCK-1108FRA00066

PATIENT
  Age: 51 Year
  Sex: Male

DRUGS (2)
  1. METFORMIN [Concomitant]
     Route: 065
  2. JANUMET [Suspect]
     Indication: TYPE 2 DIABETES MELLITUS
     Route: 048

REACTIONS (1)
  - PULMONARY EMBOLISM [None]
